FAERS Safety Report 20023906 (Version 1)
Quarter: 2021Q4

REPORT INFORMATION
  Report Type: Report from Study
  Country: JP (occurrence: JP)
  Receive Date: 20211102
  Receipt Date: 20211102
  Transmission Date: 20220304
  Serious: Yes (Hospitalization, Other)
  Sender: FDA-Public Use
  Company Number: JP-002147023-NVSJ2019JP006225

PATIENT

DRUGS (11)
  1. PASIREOTIDE [Suspect]
     Active Substance: PASIREOTIDE
     Indication: Pituitary-dependent Cushing^s syndrome
     Dosage: 10 MILLIGRAM
     Route: 030
     Dates: start: 20190108
  2. PASIREOTIDE [Suspect]
     Active Substance: PASIREOTIDE
     Dosage: 10 MILLIGRAM
     Route: 030
     Dates: start: 20190205
  3. PASIREOTIDE [Suspect]
     Active Substance: PASIREOTIDE
     Dosage: 10 MILLIGRAM
     Route: 030
     Dates: start: 20190305
  4. PASIREOTIDE [Suspect]
     Active Substance: PASIREOTIDE
     Dosage: 10 MILLIGRAM
     Route: 030
     Dates: start: 20190416
  5. PASIREOTIDE [Suspect]
     Active Substance: PASIREOTIDE
     Dosage: 10 MILLIGRAM
     Route: 030
     Dates: start: 20190514
  6. PASIREOTIDE [Suspect]
     Active Substance: PASIREOTIDE
     Dosage: 10 MILLIGRAM
     Route: 030
     Dates: start: 20190611
  7. PASIREOTIDE [Suspect]
     Active Substance: PASIREOTIDE
     Dosage: 10 MILLIGRAM
     Route: 030
     Dates: start: 20190709
  8. PASIREOTIDE [Suspect]
     Active Substance: PASIREOTIDE
     Dosage: 10 MILLIGRAM
     Route: 030
     Dates: start: 20190813
  9. METYRAPONE [Concomitant]
     Active Substance: METYRAPONE
     Indication: Pituitary-dependent Cushing^s syndrome
     Dosage: 1250 MILLIGRAM, QD
     Dates: start: 201301
  10. SITAGLIPTIN [Concomitant]
     Active Substance: SITAGLIPTIN
     Indication: Diabetes mellitus
     Dosage: 25 MILLIGRAM, QD
     Route: 048
  11. GLIMEPIRIDE [Concomitant]
     Active Substance: GLIMEPIRIDE
     Indication: Diabetes mellitus
     Dosage: 0.5 MILLIGRAM, QD
     Route: 048
     Dates: start: 20190205, end: 20190320

REACTIONS (4)
  - Hyperadrenocorticism [Recovered/Resolved]
  - Hyperglycaemia [Recovered/Resolved]
  - Fatigue [Recovered/Resolved]
  - Concomitant disease aggravated [Recovered/Resolved]

NARRATIVE: CASE EVENT DATE: 20190205
